FAERS Safety Report 9505901 (Version 1)
Quarter: 2013Q1

REPORT INFORMATION
  Report Type: Spontaneous
  Country: US (occurrence: None)
  Receive Date: 20130219
  Receipt Date: 20130219
  Transmission Date: 20140127
  Serious: Yes (Death)
  Sender: FDA-Public Use
  Company Number: 075435

PATIENT
  Sex: Male

DRUGS (7)
  1. LACOSAMIDE [Suspect]
     Indication: PARTIAL SEIZURES WITH SECONDARY GENERALISATION
     Dosage: ONE YEAR AGO
  2. LACOSAMIDE [Suspect]
     Indication: EPILEPSY
     Dosage: ONE YEAR AGO
  3. MIRTAZAPINE [Concomitant]
  4. LIPITOR [Concomitant]
  5. EFFEXOR [Concomitant]
  6. AMLODIPINE W/BENAZEPRIL [Concomitant]
  7. TOPAMAX [Concomitant]

REACTIONS (3)
  - Death [None]
  - Convulsion [None]
  - Overdose [None]
